FAERS Safety Report 6372215-7 (Version None)
Quarter: 2009Q3

REPORT INFORMATION
  Report Type: 
  Country: None (occurrence: None)
  Receive Date: 20090924
  Receipt Date: 20090915
  Transmission Date: 20100115
  Serious: Yes (Other)
  Sender: FDA-Public Use
  Company Number: US-BIOGENIDEC-2009BI026554

PATIENT
  Age: 43 Year
  Sex: Female

DRUGS (2)
  1. TYSABRI [Suspect]
     Indication: MULTIPLE SCLEROSIS
     Route: 042
     Dates: start: 20061129
  2. EPIPEN [Concomitant]
     Indication: ALLERGY TO ARTHROPOD STING

REACTIONS (3)
  - ALLERGY TO ARTHROPOD STING [None]
  - ARTHROPOD STING [None]
  - MULTIPLE SCLEROSIS RELAPSE [None]
